FAERS Safety Report 17301022 (Version 2)
Quarter: 2020Q2

REPORT INFORMATION
  Report Type: Report from Study
  Country: US (occurrence: US)
  Receive Date: 20200122
  Receipt Date: 20200529
  Transmission Date: 20200713
  Serious: Yes (Other)
  Sender: FDA-Public Use
  Company Number: NVSC2020US015452

PATIENT
  Sex: Male

DRUGS (3)
  1. AFINITOR DISPERZ [Suspect]
     Active Substance: EVEROLIMUS
     Indication: SEIZURE
     Dosage: 9 MG, QD
     Route: 048
     Dates: start: 20200101
  2. AFINITOR DISPERZ [Suspect]
     Active Substance: EVEROLIMUS
     Dosage: 7 MG, QD
     Route: 065
  3. AFINITOR DISPERZ [Suspect]
     Active Substance: EVEROLIMUS
     Dosage: 8 MG, QD
     Route: 048

REACTIONS (2)
  - Drug level increased [Not Recovered/Not Resolved]
  - Seizure [Not Recovered/Not Resolved]
